FAERS Safety Report 5294885-7 (Version None)
Quarter: 2007Q2

REPORT INFORMATION
  Report Type: 
  Country: None (occurrence: None)
  Receive Date: 20070412
  Receipt Date: 20070330
  Transmission Date: 20071010
  Serious: Yes (Hospitalization)
  Sender: FDA-Public Use
  Company Number: JP-PFIZER INC-2007027636

PATIENT
  Age: 60 Year
  Sex: Male

DRUGS (3)
  1. MIGLITOL TABLET [Suspect]
     Route: 048
  2. BASEN [Suspect]
     Route: 048
  3. NATEGLINIDE [Suspect]
     Route: 048

REACTIONS (1)
  - HEPATIC FUNCTION ABNORMAL [None]
